FAERS Safety Report 7414954-2 (Version None)
Quarter: 2011Q2

REPORT INFORMATION
  Report Type: 
  Country: None (occurrence: None)
  Receive Date: 20110405
  Receipt Date: 20110323
  Transmission Date: 20111010
  Serious: Yes (Other)
  Sender: FDA-Public Use
  Company Number: FK201100547

PATIENT
  Age: 25 Day
  Sex: Female
  Weight: 3.3 kg

DRUGS (3)
  1. ACYCLOVIR SODIUM [Suspect]
     Indication: APPARENT LIFE THREATENING EVENT
     Dosage: 60 MG, 8 HR, INTRAVENOUS DRIP
     Route: 041
     Dates: start: 20110311, end: 20110313
  2. AMPICILLIN [Concomitant]
  3. CEFOTAXIME SODIUM [Concomitant]

REACTIONS (1)
  - SINUS TACHYCARDIA [None]
